FAERS Safety Report 7299152-8 (Version None)
Quarter: 2011Q1

REPORT INFORMATION
  Report Type: 
  Country: None (occurrence: None)
  Receive Date: 20110216
  Receipt Date: 20110216
  Transmission Date: 20110831
  Serious: Yes (Life-Threatening, Disabling)
  Sender: FDA-Public Use
  Company Number: None

PATIENT
  Age: 65 Year
  Sex: Female
  Weight: 104.3273 kg

DRUGS (1)
  1. CAREONE ALCOHOL SWABS 70% ALCOHOL TRIAD MANUFACTURING [Suspect]
     Indication: THERAPEUTIC SKIN CARE TOPICAL
     Dosage: 1 PACKET 4 TIMES A DAY IV
     Route: 042

REACTIONS (5)
  - DIARRHOEA [None]
  - RASH GENERALISED [None]
  - ABDOMINAL PAIN UPPER [None]
  - EXFOLIATIVE RASH [None]
  - PRODUCT CONTAMINATION MICROBIAL [None]
